FAERS Safety Report 9444470 (Version 3)
Quarter: 2013Q4

REPORT INFORMATION
  Report Type: Spontaneous
  Country: US (occurrence: US)
  Receive Date: 20130807
  Receipt Date: 20131030
  Transmission Date: 20140711
  Serious: Yes (Hospitalization)
  Sender: FDA-Public Use
  Company Number: US-BAYER-2013-094581

PATIENT
  Age: 38 Year
  Sex: Female
  Weight: 63.04 kg

DRUGS (4)
  1. MIRENA [Suspect]
     Indication: CONTRACEPTION
     Dosage: 20 MCG/24HR, CONT
     Route: 015
     Dates: start: 20070312, end: 20100806
  2. NEURONTIN [Concomitant]
     Indication: FIBROMYALGIA
  3. ZANAFLEX [Concomitant]
     Indication: FIBROMYALGIA
  4. ZOLOFT [Concomitant]
     Indication: FIBROMYALGIA

REACTIONS (11)
  - Device dislocation [None]
  - Injury [None]
  - Procedural pain [None]
  - Emotional distress [None]
  - Device failure [None]
  - Adnexa uteri pain [None]
  - Back pain [None]
  - Endocrine disorder [None]
  - Alopecia [None]
  - Device issue [None]
  - Menorrhagia [None]
